FAERS Safety Report 6044739-3 (Version None)
Quarter: 2009Q1

REPORT INFORMATION
  Report Type: 
  Country: None (occurrence: None)
  Receive Date: 20090120
  Receipt Date: 20090114
  Transmission Date: 20090719
  Serious: No
  Sender: FDA-Public Use
  Company Number: US-B.I. PHARMACEUTICALS,INC./RIDGEFIELD-2008-BP-06663BP

PATIENT
  Age: 75 Year
  Sex: Male

DRUGS (9)
  1. SPIRIVA [Suspect]
     Indication: EMPHYSEMA
     Dosage: 18MCG
     Route: 055
     Dates: start: 20060101
  2. ADVAIR DISKUS 100/50 [Concomitant]
  3. PLAVIX [Concomitant]
     Indication: ANGINA PECTORIS
  4. ATENOLOL [Concomitant]
  5. SIMVASTATIN [Concomitant]
  6. ALBUTEROL [Concomitant]
  7. XOPENEX [Concomitant]
  8. NITROGLYCERIN [Concomitant]
  9. ASPIRIN [Concomitant]

REACTIONS (3)
  - DYSPHONIA [None]
  - HAEMOPTYSIS [None]
  - LUNG DISORDER [None]
